FAERS Safety Report 17074094 (Version 1)
Quarter: 2019Q4

REPORT INFORMATION
  Report Type: Spontaneous
  Country: FR (occurrence: FR)
  Receive Date: 20191126
  Receipt Date: 20191126
  Transmission Date: 20200122
  Serious: Yes (Other)
  Sender: FDA-Public Use
  Company Number: FR-AUROBINDO-AUR-APL-2019-073586

PATIENT
  Age: 41 Year
  Sex: Male
  Weight: 62 kg

DRUGS (5)
  1. OFLOCET [Suspect]
     Active Substance: OFLOXACIN
     Indication: SWELLING
     Dosage: UNK
     Route: 001
     Dates: start: 20190919, end: 20190926
  2. AMOXICILLIN+CLAVULANIC ACID ARROW [Suspect]
     Active Substance: AMOXICILLIN\CLAVULANIC ACID
     Indication: SWELLING
     Dosage: UNK
     Route: 048
     Dates: start: 20190919, end: 20190929
  3. AMOXICILLIN ARROW  DISPERSIBLE TABLET 1G [Suspect]
     Active Substance: AMOXICILLIN
     Indication: CHRONIC OBSTRUCTIVE PULMONARY DISEASE
     Dosage: UNK
     Route: 048
     Dates: start: 20191004, end: 20191009
  4. DALACINE [Suspect]
     Active Substance: CLINDAMYCIN
     Indication: SWELLING
     Dosage: 1800 MILLIGRAM, ONCE A DAY
     Route: 048
     Dates: start: 20190919, end: 20190929
  5. PYOSTACINE [Suspect]
     Active Substance: PRISTINAMYCIN
     Indication: FURUNCLE
     Dosage: UNK
     Route: 048
     Dates: start: 20190916, end: 20190919

REACTIONS (2)
  - Clostridium difficile infection [Recovered/Resolved]
  - Diarrhoea [Recovered/Resolved]

NARRATIVE: CASE EVENT DATE: 20190923
